FAERS Safety Report 9407126 (Version 1)
Quarter: 2013Q3

REPORT INFORMATION
  Report Type: Spontaneous
  Country: DE (occurrence: DE)
  Receive Date: 20130718
  Receipt Date: 20130718
  Transmission Date: 20140515
  Serious: Yes (Congenital Anomaly)
  Sender: FDA-Public Use
  Company Number: PHHY2013DE074370

PATIENT
  Sex: 0

DRUGS (15)
  1. ALLOPURINOL [Suspect]
     Route: 064
  2. METOPROLOL [Suspect]
     Route: 064
  3. HYDROCHLOROTHIAZIDE [Suspect]
     Route: 064
  4. METFORMIN [Suspect]
     Route: 064
  5. RAMIPRIL [Suspect]
     Route: 064
  6. METHYLDOPA [Suspect]
     Route: 064
  7. AMLODIPINE [Suspect]
     Route: 064
  8. SIMVASTATIN [Suspect]
     Route: 064
  9. VENLAFAXINE [Suspect]
     Route: 064
  10. PARACETAMOL [Suspect]
     Route: 064
  11. NALOXONE [Suspect]
     Route: 064
  12. ACETYLSALICYLIC ACID [Suspect]
     Route: 064
  13. TILIDINE [Suspect]
     Route: 064
  14. INSULIN [Suspect]
     Route: 064
  15. INSULIN LISPRO [Suspect]
     Route: 064

REACTIONS (3)
  - Atrial septal defect [Unknown]
  - Pulmonary artery stenosis [Unknown]
  - Foetal exposure during pregnancy [Unknown]
